FAERS Safety Report 18200038 (Version 1)
Quarter: 2020Q3

REPORT INFORMATION
  Report Type: Spontaneous
  Country: US (occurrence: US)
  Receive Date: 20200826
  Receipt Date: 20200826
  Transmission Date: 20201103
  Serious: Yes (Hospitalization, Other)
  Sender: FDA-Public Use
  Company Number: US-ENDO PHARMACEUTICALS INC-2020-005642

PATIENT
  Sex: Female

DRUGS (1)
  1. PERCOCET [Suspect]
     Active Substance: ACETAMINOPHEN\OXYCODONE HYDROCHLORIDE
     Indication: PRODUCT USED FOR UNKNOWN INDICATION
     Dosage: UNK UNKNOWN, UNKNOWN
     Route: 065

REACTIONS (12)
  - Back pain [Unknown]
  - Speech disorder [Unknown]
  - Memory impairment [Unknown]
  - Disability [Unknown]
  - Neck injury [Unknown]
  - Insomnia [Unknown]
  - Seizure [Unknown]
  - Fibromyalgia [Unknown]
  - Injury [Unknown]
  - Drug withdrawal syndrome [Unknown]
  - Coma [Recovered/Resolved]
  - Drug dependence [Unknown]

NARRATIVE: CASE EVENT DATE: 2016
